FAERS Safety Report 12569779 (Version 1)
Quarter: 2016Q3

REPORT INFORMATION
  Report Type: Spontaneous
  Country: None (occurrence: None)
  Receive Date: 20160718
  Receipt Date: 20160718
  Transmission Date: 20161109
  Serious: Yes (Disabling, Other)
  Sender: FDA-Public Use
  Company Number: None

PATIENT
  Age: 48 Year
  Sex: Male

DRUGS (1)
  1. MYDRIN-P [Suspect]
     Active Substance: PHENYLEPHRINE HYDROCHLORIDE\TROPICAMIDE
     Indication: EYE DISORDER

REACTIONS (7)
  - Toxicity to various agents [None]
  - Photophobia [None]
  - Instillation site pain [None]
  - Conjunctivitis [None]
  - Corneal disorder [None]
  - Eye pain [None]
  - Lacrimation decreased [None]

NARRATIVE: CASE EVENT DATE: 20150728
